FAERS Safety Report 4279945-1 (Version None)
Quarter: 2004Q1

REPORT INFORMATION
  Report Type: 
  Country: None (occurrence: None)
  Receive Date: 20040126
  Receipt Date: 20040108
  Transmission Date: 20041129
  Serious: Yes (Hospitalization)
  Sender: FDA-Public Use
  Company Number: 2004S1000413

PATIENT
  Age: 44 Year
  Sex: Male

DRUGS (4)
  1. DOXORUBICIN (DOXORUBICIN) [Suspect]
     Indication: HEPATIC NEOPLASM MALIGNANT
     Dosage: 60 MG/M^2; ONCE; INTRAVENOUS
     Route: 042
     Dates: start: 20031224, end: 20031224
  2. ESOMEPRAZOLE [Concomitant]
  3. SPIRONOLACTONE [Concomitant]
  4. PRIMPERAN TAB [Concomitant]

REACTIONS (1)
  - FEBRILE NEUTROPENIA [None]
